FAERS Safety Report 17338471 (Version 1)
Quarter: 2020Q1

REPORT INFORMATION
  Report Type: Spontaneous
  Country: US (occurrence: US)
  Receive Date: 20200128
  Receipt Date: 20200128
  Transmission Date: 20200409
  Serious: Yes (Disabling)
  Sender: FDA-Public Use
  Company Number: None

PATIENT
  Age: 56 Year
  Sex: Male
  Weight: 78.75 kg

DRUGS (2)
  1. CIPROFLOXACIN. [Suspect]
     Active Substance: CIPROFLOXACIN
     Indication: PROSTATE INFECTION
     Dosage: ?          QUANTITY:1 TABLET(S);?
     Route: 048
  2. MULTIVITAMINS [Concomitant]
     Active Substance: VITAMINS

REACTIONS (3)
  - Pain [None]
  - Arthralgia [None]
  - Back pain [None]

NARRATIVE: CASE EVENT DATE: 20190815
